FAERS Safety Report 5375190-7 (Version None)
Quarter: 2007Q2

REPORT INFORMATION
  Report Type: 
  Country: None (occurrence: None)
  Receive Date: 20070629
  Receipt Date: 20070621
  Transmission Date: 20071010
  Serious: Yes (Other)
  Sender: FDA-Public Use
  Company Number: JP-ASTRAZENECA-2007AP03796

PATIENT
  Age: 21 Year
  Sex: Female

DRUGS (4)
  1. DIPRIVAN [Suspect]
     Indication: INDUCTION OF ANAESTHESIA
     Route: 042
  2. SEVOFLURANE [Concomitant]
     Indication: MAINTENANCE OF ANAESTHESIA
     Route: 055
  3. FENTANYL [Concomitant]
     Indication: MAINTENANCE OF ANAESTHESIA
  4. UNKNOWN DRUG [Concomitant]

REACTIONS (2)
  - BLOOD PRESSURE DECREASED [None]
  - PULMONARY ARTERIAL PRESSURE INCREASED [None]
